FAERS Safety Report 16962090 (Version 1)
Quarter: 2019Q4

REPORT INFORMATION
  Report Type: Report from Study
  Country: JP (occurrence: JP)
  Receive Date: 20191025
  Receipt Date: 20191025
  Transmission Date: 20200122
  Serious: Yes (Life-Threatening, Hospitalization)
  Sender: FDA-Public Use
  Company Number: JP-ACTELION-A-CH2018-168496

PATIENT
  Age: 3 Year
  Sex: Male
  Weight: 8.7 kg

DRUGS (22)
  1. LASIX [Concomitant]
     Active Substance: FUROSEMIDE
     Dosage: 25 MG, QD
  2. SULBACILLIN [Concomitant]
     Active Substance: AMPICILLIN SODIUM\SULBACTAM SODIUM
     Dosage: 900 MG, QD
     Dates: start: 20170422
  3. INCREMIN [Concomitant]
     Active Substance: FERRIC PYROPHOSPHATE
     Indication: IRON DEFICIENCY ANAEMIA
     Dosage: 30 MG, QD
  4. FIRSTCIN [Concomitant]
     Active Substance: CEFOZOPRAN HYDROCHLORIDE
     Indication: DISSEMINATED INTRAVASCULAR COAGULATION
     Dosage: 900 MG, UNK
     Dates: start: 20170518, end: 20170526
  5. UPTRAVI [Suspect]
     Active Substance: SELEXIPAG
     Indication: PULMONARY ARTERIAL HYPERTENSION
     Dosage: 0.44 MG, BID
     Route: 048
     Dates: start: 20170422, end: 20170914
  6. CLARITH [Concomitant]
     Active Substance: CLARITHROMYCIN
     Dosage: 45 MG, QD
  7. REVATIO [Concomitant]
     Active Substance: SILDENAFIL CITRATE
     Indication: PULMONARY ARTERIAL HYPERTENSION
     Dosage: UNK
     Dates: end: 20170419
  8. ALDACTONE A [Concomitant]
     Active Substance: SPIRONOLACTONE
     Indication: CARDIAC FAILURE
     Dosage: 25 MG, QD
  9. VANCOMYCIN [Concomitant]
     Active Substance: VANCOMYCIN
     Dosage: 140 MG, QD
     Dates: start: 20170513, end: 20170522
  10. NORADRENALINE [Concomitant]
     Active Substance: NOREPINEPHRINE
     Indication: SEPSIS
     Dosage: UNK
     Dates: start: 20170425, end: 20170427
  11. MEROPEN [Concomitant]
     Active Substance: MEROPENEM
     Indication: SEPSIS
     Dosage: 200 MG, QD
     Dates: start: 20170510, end: 20170516
  12. REVATIO [Concomitant]
     Active Substance: SILDENAFIL CITRATE
     Dosage: 2 MG, QD
     Dates: start: 20180420
  13. BIOFERMIN [Concomitant]
     Active Substance: DIETARY SUPPLEMENT\PROBIOTICS
     Indication: ENTEROCOLITIS
     Dosage: 0.9 G, QD
  14. MILRILA [Concomitant]
     Active Substance: MILRINONE
     Indication: CARDIAC FAILURE
     Dosage: UNK
     Dates: start: 20170425, end: 20170513
  15. HEPARIN CALCIUM [Concomitant]
     Active Substance: HEPARIN CALCIUM
     Indication: DISSEMINATED INTRAVASCULAR COAGULATION
     Dosage: UNK
     Dates: start: 20170425, end: 20170504
  16. VANCOMYCIN [Concomitant]
     Active Substance: VANCOMYCIN
     Indication: DISSEMINATED INTRAVASCULAR COAGULATION
     Dosage: 125 MG, QD
     Dates: start: 20170425, end: 20170509
  17. DOBUTREX [Concomitant]
     Active Substance: DOBUTAMINE HYDROCHLORIDE
     Indication: DISSEMINATED INTRAVASCULAR COAGULATION
     Dosage: UNK
     Dates: start: 20170425, end: 20170509
  18. IVIGLOB EX [Concomitant]
     Active Substance: HUMAN IMMUNOGLOBULIN G
     Indication: ASTHMA
     Dosage: UNK
     Dates: start: 20170425
  19. VOLIBRIS [Concomitant]
     Active Substance: AMBRISENTAN
     Indication: PULMONARY ARTERIAL HYPERTENSION
     Dosage: 1.4 MG, QD
  20. ONON [Concomitant]
     Active Substance: PRANLUKAST
     Indication: ASTHMA
     Dosage: 65 MG, QD
  21. DEXART [Concomitant]
     Active Substance: DEXAMETHASONE SODIUM PHOSPHATE
     Dosage: UNK
     Dates: start: 20170508, end: 20170508
  22. PIMOBENDAN [Concomitant]
     Active Substance: PIMOBENDAN
     Indication: DISSEMINATED INTRAVASCULAR COAGULATION
     Dosage: UNK
     Dates: start: 20170508

REACTIONS (6)
  - Condition aggravated [Recovering/Resolving]
  - Blood culture positive [Recovering/Resolving]
  - Staphylococcus test positive [Recovering/Resolving]
  - Tachycardia [Recovering/Resolving]
  - Hypotension [Recovered/Resolved]
  - Pyrexia [Recovering/Resolving]

NARRATIVE: CASE EVENT DATE: 20170422
